FAERS Safety Report 18686410 (Version 1)
Quarter: 2020Q4

REPORT INFORMATION
  Report Type: Spontaneous
  Country: US (occurrence: US)
  Receive Date: 20201230
  Receipt Date: 20201230
  Transmission Date: 20210114
  Serious: Yes (Other)
  Sender: FDA-Public Use
  Company Number: US-SA-2020SA372170

PATIENT

DRUGS (2)
  1. ZANTAC [Suspect]
     Active Substance: RANITIDINE HYDROCHLORIDE
     Indication: DYSPEPSIA
     Dosage: 75 MG, QD
  2. ZANTAC [Suspect]
     Active Substance: RANITIDINE HYDROCHLORIDE
     Indication: GASTROOESOPHAGEAL REFLUX DISEASE
     Dosage: 150 UNK

REACTIONS (21)
  - Arthralgia [Not Recovered/Not Resolved]
  - Hyperhidrosis [Unknown]
  - Chest pain [Unknown]
  - Joint swelling [Not Recovered/Not Resolved]
  - Muscle spasms [Unknown]
  - Breast pain [Unknown]
  - Fatigue [Unknown]
  - Injection site mass [Unknown]
  - Breast cancer stage I [Unknown]
  - Asthenia [Unknown]
  - Vaginal discharge [Unknown]
  - Alopecia [Unknown]
  - Bone pain [Unknown]
  - Pneumonitis [Unknown]
  - Hypoaesthesia [Unknown]
  - Breast mass [Unknown]
  - Dyspnoea [Unknown]
  - Myalgia [Unknown]
  - Stress [Unknown]
  - Anger [Unknown]
  - Dizziness [Unknown]

NARRATIVE: CASE EVENT DATE: 20141001
